FAERS Safety Report 9334535 (Version 1)
Quarter: 2013Q2

REPORT INFORMATION
  Report Type: Spontaneous
  Country: FI (occurrence: FI)
  Receive Date: 20130606
  Receipt Date: 20130606
  Transmission Date: 20140414
  Serious: Yes (Hospitalization)
  Sender: FDA-Public Use
  Company Number: FI-SANOFI-AVENTIS-2013SA056500

PATIENT
  Age: 67 Year
  Sex: Female

DRUGS (18)
  1. KLEXANE [Suspect]
     Indication: ANTICOAGULANT THERAPY
     Dosage: DOSE: 45-90 MG
     Route: 058
  2. BLEOMYCIN SULFATE [Suspect]
     Indication: HODGKIN^S DISEASE
     Route: 042
     Dates: start: 20121018, end: 20121126
  3. ADRIAMYCIN [Suspect]
     Indication: HODGKIN^S DISEASE
     Dosage: STRENGTH: 18 MG, DOSE :45 - 90 MG
     Route: 042
     Dates: start: 20121018, end: 20130308
  4. VINBLASTINE [Suspect]
     Indication: HODGKIN^S DISEASE
     Route: 042
     Dates: start: 20121018, end: 20121126
  5. ONCOVIN [Suspect]
     Indication: HODGKIN^S DISEASE
     Dosage: STRENGTH: 2MG
     Route: 042
     Dates: start: 20121214, end: 20130308
  6. SENDOXAN [Suspect]
     Indication: HODGKIN^S DISEASE
     Dosage: STRENGTH: 1360MG
     Route: 042
     Dates: start: 20121214, end: 20130308
  7. SENDOXAN [Suspect]
     Indication: HODGKIN^S DISEASE
     Route: 042
     Dates: start: 20121018, end: 20121126
  8. SENDOXAN [Suspect]
     Indication: HODGKIN^S DISEASE
     Route: 042
     Dates: start: 20121018, end: 20130308
  9. SENDOXAN [Suspect]
     Indication: HODGKIN^S DISEASE
     Route: 042
     Dates: start: 20121018, end: 20121126
  10. SENDOXAN [Suspect]
     Indication: HODGKIN^S DISEASE
     Route: 042
     Dates: start: 20121018, end: 20121126
  11. SENDOXAN [Suspect]
     Indication: HODGKIN^S DISEASE
     Route: 042
     Dates: start: 20121214
  12. SENDOXAN [Suspect]
     Indication: HODGKIN^S DISEASE
     Route: 042
     Dates: start: 20121214, end: 20130308
  13. DACATIC [Suspect]
     Indication: HODGKIN^S DISEASE
     Dosage: STRENGTH: 680 MG
     Route: 042
     Dates: start: 20121018, end: 20121126
  14. PREDNISON [Suspect]
     Indication: HODGKIN^S DISEASE
     Dosage: STRENGTH: 100 MG
     Route: 048
     Dates: start: 20121214
  15. ZARZIO [Suspect]
     Indication: COLONY STIMULATING FACTOR THERAPY
     Route: 058
     Dates: start: 20121214, end: 20130315
  16. SOMAC [Suspect]
     Indication: PROPHYLAXIS AGAINST GASTROINTESTINAL ULCER
     Route: 048
     Dates: start: 20121018
  17. BISOPROLOL [Suspect]
     Indication: HYPERTENSION
     Route: 048
  18. THYROXIN [Suspect]
     Indication: THYROXINE DECREASED
     Route: 048

REACTIONS (5)
  - Epstein-Barr viraemia [Recovered/Resolved]
  - Neutropenia [Unknown]
  - Gait disturbance [Not Recovered/Not Resolved]
  - Asthenia [Not Recovered/Not Resolved]
  - Peripheral sensory neuropathy [Not Recovered/Not Resolved]
